FAERS Safety Report 6453865-6 (Version None)
Quarter: 2009Q4

REPORT INFORMATION
  Report Type: 
  Country: None (occurrence: None)
  Receive Date: 20091116
  Receipt Date: 20091102
  Transmission Date: 20100525
  Serious: Yes (Hospitalization)
  Sender: FDA-Public Use
  Company Number: CIP09003010

PATIENT
  Sex: Female

DRUGS (11)
  1. RISEDRONATE SODIUM [Suspect]
     Indication: OSTEOPOROSIS
     Dosage: 17.5 MG WEEKLY, ORAL
     Route: 048
     Dates: start: 20090319, end: 20090518
  2. ALFAROL (ALFACALCIDOL) [Concomitant]
  3. LOXONIN	/00890701/ (LOXOPROFEN) [Concomitant]
  4. FAMOTIDINE [Concomitant]
  5. NORVASC [Concomitant]
  6. AMARYL [Concomitant]
  7. PRAVASTATIN [Concomitant]
  8. MICARDIS [Concomitant]
  9. MAGNESIUM OXIDE (MAGNESIUM OXIDE) [Concomitant]
  10. TELEMINSOFT (BISACODYL) [Concomitant]
  11. ALL OTHER THERAPEUTIC PRODUCTS [Concomitant]

REACTIONS (2)
  - CONDITION AGGRAVATED [None]
  - JOINT CONTRACTURE [None]
